FAERS Safety Report 12340686 (Version 3)
Quarter: 2020Q3

REPORT INFORMATION
  Report Type: Report from Study
  Country: GB (occurrence: GB)
  Receive Date: 20160506
  Receipt Date: 20160519
  Transmission Date: 20201105
  Serious: Yes (Hospitalization)
  Sender: FDA-Public Use
  Company Number: GB-JNJFOC-20160409568

PATIENT
  Age: 60 Year
  Sex: Male
  Weight: 71 kg

DRUGS (2)
  1. DARATUMUMAB [Suspect]
     Active Substance: DARATUMUMAB
     Indication: PLASMA CELL MYELOMA
     Route: 042
  2. DARATUMUMAB [Suspect]
     Active Substance: DARATUMUMAB
     Indication: PLASMA CELL MYELOMA
     Route: 042
     Dates: start: 20160422, end: 20160422

REACTIONS (6)
  - Lower respiratory tract infection [Not Recovered/Not Resolved]
  - Lower respiratory tract infection [Recovered/Resolved]
  - Plasma cell myeloma [Recovered/Resolved]
  - Renal impairment [Recovered/Resolved]
  - Renal impairment [Recovered/Resolved]
  - Hypercalcaemia [Recovered/Resolved]

NARRATIVE: CASE EVENT DATE: 20160405
